FAERS Safety Report 5616727-X (Version None)
Quarter: 2008Q1

REPORT INFORMATION
  Report Type: 
  Country: None (occurrence: None)
  Receive Date: 20080204
  Receipt Date: 20080121
  Transmission Date: 20080703
  Serious: Yes (Death)
  Sender: FDA-Public Use
  Company Number: CERZ-1000036

PATIENT
  Sex: Male

DRUGS (1)
  1. CEREZYME [Suspect]
     Indication: GAUCHER'S DISEASE
     Dosage: INTRAVENOUS
     Route: 042
     Dates: start: 20071116, end: 20071214

REACTIONS (6)
  - ANGIOPATHY [None]
  - DISEASE PROGRESSION [None]
  - GAUCHER'S DISEASE [None]
  - MALAISE [None]
  - TREATMENT NONCOMPLIANCE [None]
  - WHEELCHAIR USER [None]
